FAERS Safety Report 6324864-X (Version None)
Quarter: 2009Q3

REPORT INFORMATION
  Report Type: 
  Country: None (occurrence: None)
  Receive Date: 20090824
  Receipt Date: 20090623
  Transmission Date: 20100115
  Serious: No
  Sender: FDA-Public Use
  Company Number: US-ABBOTT-09P-163-0581467-00

PATIENT
  Sex: Male
  Weight: 138.47 kg

DRUGS (3)
  1. NIASPAN [Suspect]
     Indication: BLOOD TRIGLYCERIDES INCREASED
     Dosage: INCREASED TO 1000MG AT BEDTIME
     Dates: start: 20090615
  2. NIASPAN [Suspect]
     Dates: start: 20090608
  3. LIPITOR [Concomitant]
     Indication: DRUG USE FOR UNKNOWN INDICATION

REACTIONS (3)
  - FLUSHING [None]
  - INSOMNIA [None]
  - PARAESTHESIA [None]
